FAERS Safety Report 24194807 (Version 1)
Quarter: 2024Q3

REPORT INFORMATION
  Report Type: Spontaneous
  Country: RU (occurrence: RU)
  Receive Date: 20240809
  Receipt Date: 20240809
  Transmission Date: 20241017
  Serious: Yes (Other)
  Sender: PFIZER
  Company Number: RU-PFIZER INC-202400231083

PATIENT
  Age: 66 Year
  Sex: Female

DRUGS (1)
  1. XALKORI [Suspect]
     Active Substance: CRIZOTINIB
     Indication: Non-small cell lung cancer
     Dosage: UNK

REACTIONS (3)
  - Ischaemic cardiomyopathy [Recovered/Resolved with Sequelae]
  - Drug eruption [Recovered/Resolved with Sequelae]
  - Bronchitis [Recovered/Resolved with Sequelae]
